FAERS Safety Report 8607954-8 (Version None)
Quarter: 2012Q3

REPORT INFORMATION
  Report Type: 
  Country: None (occurrence: None)
  Receive Date: 20120806
  Receipt Date: 20120725
  Transmission Date: 20120928
  Serious: Yes (Other)
  Sender: FDA-Public Use
  Company Number: ACO_31264_2012

PATIENT
  Sex: Female

DRUGS (5)
  1. AVONEX [Concomitant]
  2. AMPYRA [Suspect]
     Indication: MULTIPLE SCLEROSIS
     Dosage: 10 MG, BID, ORAL
     Route: 048
     Dates: start: 20100709
  3. IBUPROFEN [Concomitant]
  4. GABAPENTIN [Concomitant]
  5. BACLOFEN [Concomitant]

REACTIONS (3)
  - WEIGHT DECREASED [None]
  - FALL [None]
  - HIP FRACTURE [None]
